FAERS Safety Report 8778006 (Version 1)
Quarter: 2012Q4

REPORT INFORMATION
  Report Type: 
  Country: US (occurrence: US)
  Receive Date: 20120911
  Receipt Date: 20120911
  Transmission Date: 20130627
  Serious: No
  Sender: FDA-Public Use
  Company Number: US-PFIZER INC-2012221164

PATIENT
  Sex: Female

DRUGS (1)
  1. SPIRONOLACTONE [Suspect]
     Dosage: UNK

REACTIONS (4)
  - Dry mouth [Unknown]
  - Paraesthesia oral [Unknown]
  - Dysgeusia [Unknown]
  - Back pain [Unknown]
